FAERS Safety Report 17456662 (Version 2)
Quarter: 2020Q2

REPORT INFORMATION
  Report Type: Report from Study
  Country: IT (occurrence: IT)
  Receive Date: 20200225
  Receipt Date: 20200401
  Transmission Date: 20200713
  Serious: Yes (Life-Threatening, Hospitalization)
  Sender: FDA-Public Use
  Company Number: NVSC2020IT037929

PATIENT
  Age: 61 Year
  Sex: Female
  Weight: 60 kg

DRUGS (2)
  1. PDR001 [Suspect]
     Active Substance: SPARTALIZUMAB
     Indication: DRUG LEVEL
     Dosage: 400 MG, Q4W
     Route: 042
     Dates: start: 20190917
  2. CANAKINUMAB. [Suspect]
     Active Substance: CANAKINUMAB
     Indication: DRUG LEVEL
     Dosage: 600 MG, OT
     Route: 058
     Dates: start: 20190305

REACTIONS (1)
  - Respiratory failure [Not Recovered/Not Resolved]

NARRATIVE: CASE EVENT DATE: 20200210
